FAERS Safety Report 8075800-X (Version None)
Quarter: 2012Q1

REPORT INFORMATION
  Report Type: 
  Country: None (occurrence: None)
  Receive Date: 20120127
  Receipt Date: 20120116
  Transmission Date: 20120608
  Serious: Yes (Hospitalization)
  Sender: FDA-Public Use
  Company Number: US-ELI_LILLY_AND_COMPANY-US201006002846

PATIENT
  Sex: Female

DRUGS (16)
  1. FORTEO [Suspect]
     Dosage: 20 UG, QD
     Route: 058
  2. MULTI-VITAMIN [Concomitant]
  3. FORTEO [Suspect]
     Dosage: 20 UG, QD
     Route: 058
  4. FORTEO [Suspect]
     Dosage: 20 UG, QD
     Route: 058
  5. MECLIZINE [Concomitant]
     Indication: VERTIGO
  6. FORTEO [Suspect]
     Dosage: 20 UG, QD
     Route: 058
  7. VITAMIN D [Concomitant]
     Indication: VITAMIN D DECREASED
     Dosage: 1000 U, DAILY
  8. VITAMIN D [Concomitant]
     Dosage: 4000 IU, QD
  9. VITAMIN D [Concomitant]
     Dosage: 1000 MG, DAILY
  10. FORTEO [Suspect]
     Indication: OSTEOPOROSIS
     Dosage: 20 UG, QD
     Route: 058
     Dates: end: 20100609
  11. FORTEO [Suspect]
     Dosage: 20 UG, QD
     Route: 058
     Dates: end: 20111211
  12. CALCIUM W/VITAMIN D NOS [Concomitant]
  13. VITAMIN TAB [Concomitant]
     Dosage: UNK, DAILY
  14. CALCIUM [Concomitant]
     Dosage: 600 MG, DAILY
  15. GLUCOSAMINE [Concomitant]
     Dosage: 1500 U, QD
  16. FORTEO [Suspect]
     Dosage: 20 UG, QD
     Route: 058
     Dates: start: 20100709

REACTIONS (19)
  - ABASIA [None]
  - GAIT DISTURBANCE [None]
  - DYSPEPSIA [None]
  - OSTEOPOROSIS [None]
  - NODULE [None]
  - INJECTION SITE HAEMORRHAGE [None]
  - BACK PAIN [None]
  - PAIN IN EXTREMITY [None]
  - CHEST PAIN [None]
  - NAUSEA [None]
  - DEPRESSED MOOD [None]
  - RENAL CYST [None]
  - PANCREATIC DISORDER [None]
  - OEDEMA PERIPHERAL [None]
  - MUSCLE DISORDER [None]
  - SOMNOLENCE [None]
  - VERTIGO [None]
  - DIZZINESS [None]
  - INJECTION SITE HAEMATOMA [None]
